FAERS Safety Report 11224131 (Version 1)
Quarter: 2015Q2

REPORT INFORMATION
  Report Type: Spontaneous
  Country: US (occurrence: None)
  Receive Date: 20150626
  Receipt Date: 20150626
  Transmission Date: 20150821
  Serious: Yes (Death)
  Sender: FDA-Public Use
  Company Number: None

PATIENT
  Age: 70 Year
  Sex: Male
  Weight: 83.01 kg

DRUGS (12)
  1. LIPASE-PROTEASE-AMYLASE (ZENPEP) [Concomitant]
  2. ALLOPURINOL (ZYLOPRIM) [Concomitant]
  3. PREDNISONE (DELTASONE) [Concomitant]
  4. POTASSIUM CHLORIDE (K-TAB) [Concomitant]
  5. IBRUTINIB 140MG JANSSEN BIOTECH [Suspect]
     Active Substance: IBRUTINIB
     Indication: CHRONIC LYMPHOCYTIC LEUKAEMIA
     Dosage: 2 PILLS QD ORAL
     Route: 048
     Dates: end: 20150523
  6. PROSCAR [Concomitant]
     Active Substance: FINASTERIDE
  7. HUMULIN N [Concomitant]
     Active Substance: INSULIN HUMAN
  8. MAGNESIUM OXIDE. [Concomitant]
     Active Substance: MAGNESIUM OXIDE
  9. WARFARIN (COUMADIN) [Concomitant]
  10. TORSEMIDE (DEMADEX) [Concomitant]
  11. LEVOTHYROXINE [Concomitant]
     Active Substance: LEVOTHYROXINE
  12. COLCHICINE (MITIGARE) [Concomitant]

REACTIONS (2)
  - Bronchopulmonary aspergillosis [None]
  - Necrosis [None]

NARRATIVE: CASE EVENT DATE: 20150529
